FAERS Safety Report 7095785-2 (Version None)
Quarter: 2010Q4

REPORT INFORMATION
  Report Type: 
  Country: None (occurrence: None)
  Receive Date: 20101111
  Receipt Date: 20101029
  Transmission Date: 20110411
  Serious: Yes (Hospitalization, Other)
  Sender: FDA-Public Use
  Company Number: PHFR2010GB04655

PATIENT
  Sex: Female

DRUGS (2)
  1. CLOZARIL [Suspect]
     Indication: SCHIZOPHRENIA
     Dosage: 225 MG, UNK
     Route: 048
     Dates: start: 19920922, end: 20101025
  2. CARBIMAZOLE [Concomitant]

REACTIONS (4)
  - CONCOMITANT DISEASE PROGRESSION [None]
  - HYPERTHYROIDISM [None]
  - THYROID FUNCTION TEST ABNORMAL [None]
  - TREATMENT NONCOMPLIANCE [None]
